FAERS Safety Report 8510394-3 (Version None)
Quarter: 2012Q3

REPORT INFORMATION
  Report Type: 
  Country: None (occurrence: None)
  Receive Date: 20120713
  Receipt Date: 20120703
  Transmission Date: 20120928
  Serious: Yes (Life-Threatening, Hospitalization)
  Sender: FDA-Public Use
  Company Number: JP-AMGEN-JPNCT2012043388

PATIENT
  Age: 69 Year
  Sex: Female
  Weight: 39 kg

DRUGS (10)
  1. DARBEPOETIN ALFA - KHK [Suspect]
     Indication: NEPHROGENIC ANAEMIA
     Dosage: 30 MUG, QD
     Route: 058
     Dates: start: 20101204, end: 20111228
  2. DARBEPOETIN ALFA - KHK [Suspect]
     Dosage: 30 MUG, Q3WK
     Route: 058
     Dates: start: 20101222, end: 20110223
  3. ADALAT [Concomitant]
     Dosage: UNK
     Route: 048
  4. DARBEPOETIN ALFA - KHK [Suspect]
     Dosage: 30 MUG, QD
     Route: 058
     Dates: start: 20110915, end: 20110915
  5. DARBEPOETIN ALFA - KHK [Suspect]
     Dosage: 60 MUG, Q3WK
     Route: 058
     Dates: start: 20111116, end: 20111207
  6. DARBEPOETIN ALFA - KHK [Suspect]
     Dosage: 30 MUG, QD
     Route: 058
     Dates: start: 20111228, end: 20111228
  7. OLMESARTAN MEDOXOMIL [Concomitant]
     Dosage: UNK
     Route: 048
  8. SODIUM BICARBONATE [Concomitant]
     Dosage: UNK
     Route: 048
  9. ALFAROL [Concomitant]
     Dosage: UNK
     Route: 048
  10. DARBEPOETIN ALFA - KHK [Suspect]
     Dosage: 30 MUG, Q3WK
     Route: 058
     Dates: start: 20110407, end: 20110901

REACTIONS (1)
  - CEREBRAL HAEMORRHAGE [None]
